FAERS Safety Report 9179176 (Version 1)
Quarter: 2013Q1

REPORT INFORMATION
  Report Type: Spontaneous
  Country: BR (occurrence: BR)
  Receive Date: 20130321
  Receipt Date: 20130321
  Transmission Date: 20140127
  Serious: Yes (Other)
  Sender: FDA-Public Use
  Company Number: BR-GLAXOSMITHKLINE-A1016375A

PATIENT
  Age: 69 Year
  Sex: Male
  Weight: 79 kg

DRUGS (3)
  1. COMBODART [Suspect]
     Indication: BENIGN PROSTATIC HYPERPLASIA
     Dosage: 1CAP PER DAY
     Route: 065
     Dates: start: 20130222, end: 20130306
  2. OMEPRAZOLE [Concomitant]
     Dosage: 1TAB TWICE PER DAY
     Route: 048
     Dates: start: 201209
  3. DORMONID [Concomitant]
     Indication: INSOMNIA
     Dosage: .5TAB PER DAY
     Route: 048
     Dates: start: 1983

REACTIONS (6)
  - Clavicle fracture [Unknown]
  - Head injury [Unknown]
  - Fall [Unknown]
  - Dizziness [Recovered/Resolved]
  - Syncope [Recovered/Resolved]
  - Presyncope [Unknown]
